FAERS Safety Report 17041573 (Version 1)
Quarter: 2019Q4

REPORT INFORMATION
  Report Type: Spontaneous
  Country: CN (occurrence: CN)
  Receive Date: 20191118
  Receipt Date: 20191118
  Transmission Date: 20200122
  Serious: Yes (Hospitalization, Other)
  Sender: FDA-Public Use
  Company Number: CN-BAXTER-2019BAX022938

PATIENT
  Age: 47 Year
  Sex: Female
  Weight: 55 kg

DRUGS (13)
  1. ENDOXAN [Suspect]
     Active Substance: CYCLOPHOSPHAMIDE
     Indication: OVARIAN CANCER
     Dosage: ON DAY 1, ENDOXAN 900 MG + 0.9% NS (NORMAL SALINE) 40 ML
     Route: 042
     Dates: start: 20190619, end: 20190619
  2. EPIRUBICIN HYDROCHLORIDE. [Suspect]
     Active Substance: EPIRUBICIN HYDROCHLORIDE
     Dosage: DOSE RE-INTRODUCED. EPIRUBICIN HYDROCHLORIDE + 0.9% NS
     Route: 041
  3. 0.9% SODIUM CHLORIDE INJECTION [Suspect]
     Active Substance: SODIUM CHLORIDE
     Dosage: DOSE RE-INTRODUCED. EPIRUBICIN HYDROCHLORIDE + 0.9% NS
     Route: 041
  4. NUOXIN [Suspect]
     Active Substance: CISPLATIN
     Dosage: DOSE RE-INTRODUCED. NUOXIN + 0.9% NS
     Route: 041
  5. 0.9% SODIUM CHLORIDE INJECTION [Suspect]
     Active Substance: SODIUM CHLORIDE
     Dosage: ON DAY 2, NUOXIN 100 MG + 0.9% NS 100 ML
     Route: 041
     Dates: start: 20190620, end: 20190620
  6. 0.9% SODIUM CHLORIDE INJECTION [Suspect]
     Active Substance: SODIUM CHLORIDE
     Dosage: DOSE RE-INTRODUCED. NUOXIN + 0.9% NS
     Route: 041
  7. EPIRUBICIN HYDROCHLORIDE. [Suspect]
     Active Substance: EPIRUBICIN HYDROCHLORIDE
     Indication: OVARIAN CANCER
     Dosage: ON DAY 1, EPIRUBICIN HYDROCHLORIDE 80 MG + 0.9% NS 250 ML
     Route: 041
     Dates: start: 20190619, end: 20190619
  8. HUMAN THROMBOPOIETIN [Concomitant]
     Indication: PROPHYLAXIS
     Dosage: DOSE: 15000 U
     Route: 058
     Dates: start: 20190703, end: 20190703
  9. ENDOXAN [Suspect]
     Active Substance: CYCLOPHOSPHAMIDE
     Dosage: DOSE RE-INTRODUCED. ENDOXAN + 0.9% NS
     Route: 042
  10. NUOXIN [Suspect]
     Active Substance: CISPLATIN
     Indication: OVARIAN CANCER
     Dosage: ON DAY 2, NUOXIN 100 MG + 0.9% NS 100 ML
     Route: 041
     Dates: start: 20190620, end: 20190620
  11. 0.9% SODIUM CHLORIDE INJECTION [Suspect]
     Active Substance: SODIUM CHLORIDE
     Indication: MEDICATION DILUTION
     Dosage: ON DAY 1, ENDOXAN 900 MG + 0.9% NS 40 ML
     Route: 042
     Dates: start: 20190619, end: 20190619
  12. 0.9% SODIUM CHLORIDE INJECTION [Suspect]
     Active Substance: SODIUM CHLORIDE
     Dosage: ON DAY 1, EPIRUBICIN HYDROCHLORIDE 80 MG + 0.9% NS 250 ML
     Route: 041
     Dates: start: 20190619, end: 20190619
  13. 0.9% SODIUM CHLORIDE INJECTION [Suspect]
     Active Substance: SODIUM CHLORIDE
     Dosage: DOSE RE-INTRODUCED. ENDOXAN + 0.9% NS
     Route: 042

REACTIONS (1)
  - Bone marrow failure [Recovering/Resolving]

NARRATIVE: CASE EVENT DATE: 20190704
